FAERS Safety Report 10066684 (Version 2)
Quarter: 2014Q2

REPORT INFORMATION
  Report Type: Report from Study
  Country: TW (occurrence: TW)
  Receive Date: 20140408
  Receipt Date: 20140408
  Transmission Date: 20141212
  Serious: Yes (Hospitalization)
  Sender: FDA-Public Use
  Company Number: TW-ONYX-2013-1827

PATIENT
  Age: 67 Year
  Sex: Male

DRUGS (22)
  1. CARFILZOMIB [Suspect]
     Indication: PLASMA CELL MYELOMA
     Route: 042
     Dates: start: 20130318, end: 20130319
  2. CARFILZOMIB [Suspect]
     Route: 042
     Dates: start: 20130326, end: 20130326
  3. CARFILZOMIB [Suspect]
     Route: 042
     Dates: start: 20130416, end: 20131113
  4. CARFILZOMIB [Suspect]
     Route: 042
     Dates: start: 20131203
  5. DEXAMETHASONE [Suspect]
     Indication: PLASMA CELL MYELOMA
     Route: 048
     Dates: start: 20130318, end: 20130925
  6. DEXAMETHASONE [Suspect]
     Route: 048
     Dates: start: 20131001
  7. NEXIUM [Concomitant]
     Indication: PROPHYLAXIS
     Route: 048
     Dates: start: 20130318, end: 20131224
  8. VALTREX [Concomitant]
     Indication: PROPHYLAXIS
     Route: 048
     Dates: start: 20130318, end: 20131224
  9. LIPITOR [Concomitant]
     Indication: PROPHYLAXIS
     Route: 048
     Dates: start: 20131007, end: 20131229
  10. RASITOL [Concomitant]
     Indication: PROPHYLAXIS
     Route: 042
     Dates: start: 20131105, end: 20131105
  11. SOLU-CORTEF [Concomitant]
     Indication: PROPHYLAXIS
     Route: 042
     Dates: start: 20131105, end: 20131105
  12. ACETAMINOPHEN [Concomitant]
     Indication: PROPHYLAXIS
     Route: 048
     Dates: start: 20131106, end: 20131109
  13. AUGMENTINE [Concomitant]
     Indication: PROPHYLAXIS
     Route: 048
     Dates: start: 20131106, end: 20131109
  14. CEFEPIME [Concomitant]
     Indication: PROPHYLAXIS
     Route: 042
     Dates: start: 20131106, end: 20131106
  15. ADALAT [Concomitant]
     Indication: HYPERTENSION
     Route: 048
     Dates: start: 20131110, end: 20131118
  16. CORACTEN [Concomitant]
     Indication: HYPERTENSION
     Route: 048
     Dates: start: 20131110, end: 20131110
  17. FUROSEMIDE [Concomitant]
     Indication: PROPHYLAXIS
     Route: 042
     Dates: start: 20131110, end: 20131110
  18. CRAVIT [Concomitant]
     Indication: PYREXIA
     Route: 042
     Dates: start: 20131112, end: 20131112
  19. LASIX [Concomitant]
     Indication: HYPERTENSION
     Route: 048
     Dates: start: 20131112, end: 20131118
  20. ACETAMINOPHINE [Concomitant]
     Indication: PYREXIA
     Route: 048
     Dates: start: 20131113, end: 20131113
  21. CEFUROXIME [Concomitant]
     Indication: PYREXIA
     Route: 042
     Dates: start: 20131113, end: 20131119
  22. CEFUROXIME [Concomitant]
     Route: 048
     Dates: start: 20131113, end: 20131116

REACTIONS (1)
  - Influenza [Recovered/Resolved]
